FAERS Safety Report 4520319-3 (Version None)
Quarter: 2004Q4

REPORT INFORMATION
  Report Type: 
  Country: None (occurrence: None)
  Receive Date: 20041207
  Receipt Date: 20040921
  Transmission Date: 20050328
  Serious: No
  Sender: FDA-Public Use
  Company Number: US-GLAXOSMITHKLINE-A0526841A

PATIENT
  Age: 29 Year
  Sex: Female

DRUGS (2)
  1. SUMATRIPTAN SUCCINATE [Suspect]
     Indication: MIGRAINE
     Dosage: 6MG PER DAY
     Route: 058
     Dates: start: 20040428, end: 20040428
  2. PROPYLTHIOURACIL [Concomitant]
     Indication: HYPERTHYROIDISM

REACTIONS (1)
  - DRUG EXPOSURE DURING PREGNANCY [None]
